FAERS Safety Report 10348446 (Version 1)
Quarter: 2014Q3

REPORT INFORMATION
  Report Type: Report from Study
  Country: US (occurrence: US)
  Receive Date: 20140729
  Receipt Date: 20140729
  Transmission Date: 20150326
  Serious: No
  Sender: FDA-Public Use
  Company Number: US-ABBVIE-13P-163-1118696-00

PATIENT
  Sex: Female
  Weight: 40.86 kg

DRUGS (2)
  1. NIASPAN [Suspect]
     Active Substance: NIACIN
     Dosage: 1000 MG ONCE DAILY
     Dates: end: 20130614
  2. NIASPAN [Suspect]
     Active Substance: NIACIN
     Indication: BLOOD CHOLESTEROL INCREASED
     Dosage: 500 MG ONCE DAILY
     Dates: start: 201305

REACTIONS (5)
  - Vomiting [Recovered/Resolved]
  - Glossodynia [Not Recovered/Not Resolved]
  - Dry mouth [Recovering/Resolving]
  - Hypogeusia [Not Recovered/Not Resolved]
  - Nausea [Recovered/Resolved]
